FAERS Safety Report 9986084 (Version 1)
Quarter: 2014Q1

REPORT INFORMATION
  Report Type: Report from Study
  Country: US (occurrence: US)
  Receive Date: 20140307
  Receipt Date: 20140307
  Transmission Date: 20141002
  Serious: No
  Sender: FDA-Public Use
  Company Number: US-ABBVIE-13P-163-1087418-00

PATIENT
  Age: 19 Year
  Sex: Female

DRUGS (1)
  1. HUMIRA [Suspect]
     Indication: PRODUCT USED FOR UNKNOWN INDICATION
     Route: 058
     Dates: start: 20121214, end: 20130508

REACTIONS (5)
  - Contusion [Unknown]
  - Injection site haemorrhage [Unknown]
  - Injection site oedema [Unknown]
  - Pruritus [Unknown]
  - Injection site erythema [Unknown]
